FAERS Safety Report 10014263 (Version 3)
Quarter: 2015Q2

REPORT INFORMATION
  Report Type: Spontaneous
  Country: AU (occurrence: AU)
  Receive Date: 20140317
  Receipt Date: 20150622
  Transmission Date: 20150821
  Serious: Yes (Hospitalization)
  Sender: FDA-Public Use
  Company Number: AU-BIOGENIDEC-2014BI021992

PATIENT
  Age: 41 Year
  Sex: Female

DRUGS (2)
  1. TECFIDERA [Suspect]
     Active Substance: DIMETHYL FUMARATE
     Indication: MULTIPLE SCLEROSIS
     Route: 048
  2. TECFIDERA [Suspect]
     Active Substance: DIMETHYL FUMARATE
     Indication: MULTIPLE SCLEROSIS
     Route: 048
     Dates: start: 20131122

REACTIONS (7)
  - Joint dislocation [Unknown]
  - Fall [Recovered/Resolved]
  - Optic neuritis [Recovered/Resolved]
  - Flushing [Unknown]
  - Ankle fracture [Not Recovered/Not Resolved]
  - Migraine [Recovered/Resolved]
  - Osteomalacia [Unknown]

NARRATIVE: CASE EVENT DATE: 20140122
